FAERS Safety Report 5477905-6 (Version None)
Quarter: 2007Q4

REPORT INFORMATION
  Report Type: 
  Country: None (occurrence: None)
  Receive Date: 20071005
  Receipt Date: 20070926
  Transmission Date: 20080405
  Serious: Yes (Other)
  Sender: FDA-Public Use
  Company Number: US-JNJFOC-20070905991

PATIENT
  Age: 78 Year
  Sex: Male

DRUGS (2)
  1. REOPRO [Suspect]
     Dosage: AN UNSPECIFIED INFUSION
     Route: 042
  2. REOPRO [Suspect]
     Indication: DRUG USE FOR UNKNOWN INDICATION
     Route: 042

REACTIONS (1)
  - CORONARY ARTERY DISEASE [None]
